FAERS Safety Report 10031723 (Version 1)
Quarter: 2014Q1

REPORT INFORMATION
  Report Type: Spontaneous
  Country: US (occurrence: US)
  Receive Date: 20140324
  Receipt Date: 20140324
  Transmission Date: 20141002
  Serious: No
  Sender: FDA-Public Use
  Company Number: US-PFIZER INC-2014083399

PATIENT
  Age: 53 Year
  Sex: Female
  Weight: 116.55 kg

DRUGS (3)
  1. CELEBREX [Suspect]
     Indication: OSTEOARTHRITIS
     Dosage: 200 MG, 2X/DAY
     Dates: start: 20140102, end: 201403
  2. CELEBREX [Suspect]
     Indication: OSTEOARTHRITIS
  3. LYRICA [Concomitant]
     Indication: FIBROMYALGIA
     Dosage: 100 MG, 3X/DAY

REACTIONS (3)
  - Blood cholesterol increased [Unknown]
  - Blood triglycerides increased [Unknown]
  - Pain [Unknown]
